FAERS Safety Report 24576823 (Version 1)
Quarter: 2024Q4

REPORT INFORMATION
  Report Type: Spontaneous
  Country: CN (occurrence: CN)
  Receive Date: 20241104
  Receipt Date: 20241104
  Transmission Date: 20250115
  Serious: Yes (Hospitalization)
  Sender: PAREXEL
  Company Number: CN-SHANGHAI JUNSHI BIOSCIENCES CO., LTD.-CN2024011847

PATIENT

DRUGS (3)
  1. TORIPALIMAB [Suspect]
     Active Substance: TORIPALIMAB
     Indication: Lip and/or oral cavity cancer
     Dosage: 240 MG
     Route: 041
     Dates: start: 20240906
  2. ERBITUX [Concomitant]
     Active Substance: CETUXIMAB
     Indication: Lip and/or oral cavity cancer
     Dosage: 500 MG
     Route: 041
     Dates: start: 20240906
  3. ERBITUX [Concomitant]
     Active Substance: CETUXIMAB
     Dosage: 500 MG
     Route: 041
     Dates: start: 20240929

REACTIONS (1)
  - Renal failure [Recovering/Resolving]

NARRATIVE: CASE EVENT DATE: 20240929
